FAERS Safety Report 12900094 (Version 2)
Quarter: 2016Q4

REPORT INFORMATION
  Report Type: Spontaneous
  Country: DE (occurrence: DE)
  Receive Date: 20161101
  Receipt Date: 20161213
  Transmission Date: 20170207
  Serious: Yes (Hospitalization, Other)
  Sender: FDA-Public Use
  Company Number: PHHY2016DE146432

PATIENT
  Sex: Female

DRUGS (3)
  1. AMIODARON [Concomitant]
     Active Substance: AMIODARONE
     Indication: ATRIAL FIBRILLATION
     Dosage: 1 DF, QD
     Route: 048
     Dates: start: 201512
  2. ENTRESTO [Suspect]
     Active Substance: SACUBITRIL\VALSARTAN
     Indication: CONGESTIVE CARDIOMYOPATHY
     Dosage: 1 DF, BID
     Route: 065
     Dates: start: 20160628, end: 20161014
  3. APIXABAN [Concomitant]
     Active Substance: APIXABAN
     Indication: THROMBOSIS PROPHYLAXIS
     Dosage: 2 DF, QD
     Route: 048

REACTIONS (7)
  - Dyspnoea [Recovered/Resolved]
  - Cardiac failure chronic [Recovering/Resolving]
  - Cardiac failure [Unknown]
  - Blood pressure decreased [Recovering/Resolving]
  - Cardiorenal syndrome [Not Recovered/Not Resolved]
  - Glomerular filtration rate decreased [Unknown]
  - Product use issue [Unknown]

NARRATIVE: CASE EVENT DATE: 20161013
